FAERS Safety Report 8603669-0 (Version None)
Quarter: 2012Q3

REPORT INFORMATION
  Report Type: 
  Country: None (occurrence: None)
  Receive Date: 20120817
  Receipt Date: 20120813
  Transmission Date: 20120928
  Serious: Yes (Death, Other)
  Sender: FDA-Public Use
  Company Number: IT-BAYER-2012-083339

PATIENT
  Age: 63 Year
  Sex: Male

DRUGS (14)
  1. KOGENATE [Suspect]
     Indication: FACTOR VIII DEFICIENCY
     Dosage: 30 IU, ONCE
     Route: 040
  2. HEPARIN [Concomitant]
     Indication: ACUTE CORONARY SYNDROME
     Dosage: 2500 IU, ONCE
  3. DOXAZOSIN MESYLATE [Concomitant]
     Indication: HYPERTENSION
  4. ATENOLOL [Concomitant]
     Indication: HYPERTENSION
  5. AMLODIPINE [Concomitant]
  6. NSAID'S [Concomitant]
     Indication: HAEMOPHILIC ARTHROPATHY
  7. RAMIPRIL [Concomitant]
     Indication: HYPERTENSION
  8. EPOETIN NOS [Concomitant]
  9. CLOPIDOGREL [Concomitant]
     Indication: ACUTE CORONARY SYNDROME
     Dosage: 75 MG, ONCE
  10. KOGENATE [Suspect]
     Indication: ANGIOGRAM
     Dosage: 1 IU/KG, Q1HR
     Route: 042
  11. INSULIN [Concomitant]
     Indication: DIABETES MELLITUS
     Dosage: UNK
  12. DIURETICS [Concomitant]
     Indication: ACUTE CORONARY SYNDROME
  13. HEPARIN [Concomitant]
     Dosage: 600 IU, Q1HR
  14. NITRATES [Concomitant]
     Indication: ACUTE CORONARY SYNDROME

REACTIONS (2)
  - MYOCARDIAL INFARCTION [None]
  - SUDDEN DEATH [None]
